FAERS Safety Report 14573353 (Version 1)
Quarter: 2018Q1

REPORT INFORMATION
  Report Type: Spontaneous
  Country: IR (occurrence: IR)
  Receive Date: 20180226
  Receipt Date: 20180226
  Transmission Date: 20180509
  Serious: Yes (Other)
  Sender: FDA-Public Use
  Company Number: IR-TELIGENT, INC-IGIL20180096

PATIENT
  Age: 20 Year
  Sex: Male

DRUGS (3)
  1. BETAMETHASONE. [Concomitant]
     Active Substance: BETAMETHASONE
     Indication: CORNEAL GRAFT REJECTION
     Dosage: UNKNOWN
     Route: 061
  2. PREDNISOLONE. [Concomitant]
     Active Substance: PREDNISOLONE
     Indication: CORNEAL GRAFT REJECTION
     Dosage: 50 MG
     Route: 048
  3. TRIAMCINOLONE ACETONIDE. [Suspect]
     Active Substance: TRIAMCINOLONE ACETONIDE
     Indication: CORNEAL GRAFT REJECTION
     Dosage: 20 MG
     Route: 031

REACTIONS (8)
  - Infective scleritis [Recovered/Resolved]
  - Eye pain [Unknown]
  - Condition aggravated [Unknown]
  - Staphylococcal infection [Recovered/Resolved]
  - Eye discharge [Unknown]
  - Conjunctival ulcer [Unknown]
  - Necrotising scleritis [Recovered/Resolved]
  - Anterior chamber disorder [Unknown]
